FAERS Safety Report 5388536-0 (Version None)
Quarter: 2007Q3

REPORT INFORMATION
  Report Type: 
  Country: None (occurrence: None)
  Receive Date: 20070716
  Receipt Date: 20070703
  Transmission Date: 20080115
  Serious: Yes (Other)
  Sender: FDA-Public Use
  Company Number: US-PURDUE-USA_2007_0027693

PATIENT
  Age: 36 Year
  Sex: Female
  Weight: 77 kg

DRUGS (3)
  1. OXYCONTIN [Suspect]
     Indication: DRUG USE FOR UNKNOWN INDICATION
     Dosage: 400 MG, DAILY
     Dates: start: 19981123, end: 20061117
  2. HEROIN [Suspect]
     Indication: DRUG ABUSER
     Route: 042
  3. OXYIR [Concomitant]
     Dosage: 15 MG, PRN

REACTIONS (14)
  - ARTHRALGIA [None]
  - BRUXISM [None]
  - DRUG DEPENDENCE [None]
  - DRUG WITHDRAWAL SYNDROME [None]
  - HEPATITIS C ANTIBODY POSITIVE [None]
  - IRRITABILITY [None]
  - MALAISE [None]
  - PAIN [None]
  - PRURITUS [None]
  - SEDATION [None]
  - SUBSTANCE ABUSE [None]
  - TOOTH LOSS [None]
  - VOMITING [None]
  - WEIGHT DECREASED [None]
